FAERS Safety Report 8590645-X (Version None)
Quarter: 2012Q3

REPORT INFORMATION
  Report Type: 
  Country: None (occurrence: None)
  Receive Date: 20120813
  Receipt Date: 20120809
  Transmission Date: 20120928
  Serious: No
  Sender: FDA-Public Use
  Company Number: US-PFIZER INC-2012151118

PATIENT
  Age: 73 Year
  Sex: Male
  Weight: 94.331 kg

DRUGS (9)
  1. LYRICA [Suspect]
     Indication: NEURALGIA
  2. LISINOPRIL [Concomitant]
     Indication: HYPERTENSION
     Dosage: 40 MG, DAILY
  3. PLAVIX [Concomitant]
     Dosage: 75 MG, DAILY
  4. VITAMIN B COMPLEX CAP [Concomitant]
     Dosage: UNK
  5. LYRICA [Suspect]
     Indication: NEUROPATHY PERIPHERAL
     Dosage: 25 MG, 3X/DAY
     Route: 048
     Dates: end: 20110101
  6. TEMAZEPAM [Concomitant]
     Indication: SLEEP DISORDER
     Dosage: 80 MG, DAILY
  7. AMLODIPINE [Concomitant]
     Indication: HYPERTENSION
     Dosage: 10 MG, DAILY
  8. CARVEDILOL [Concomitant]
     Indication: HYPERTENSION
     Dosage: 3.125 MG, DAILY
  9. LYRICA [Suspect]
     Indication: PERIPHERAL NERVE INJURY
     Dosage: 25 MG, 3X/DAY
     Dates: start: 20120601

REACTIONS (3)
  - DRUG INEFFECTIVE [None]
  - AMNESIA [None]
  - SOMNOLENCE [None]
